FAERS Safety Report 6528714-8 (Version None)
Quarter: 2009Q4

REPORT INFORMATION
  Report Type: 
  Country: None (occurrence: None)
  Receive Date: 20091224
  Receipt Date: 20091209
  Transmission Date: 20100525
  Serious: Yes (Other)
  Sender: FDA-Public Use
  Company Number: 2009-196016-NL

PATIENT
  Age: 23 Year
  Sex: Female
  Weight: 63 kg

DRUGS (6)
  1. DESOGESTREL AND ETHINYL ESTRADIOL [Suspect]
     Indication: CONTRACEPTION
     Dosage: ; PO
     Route: 048
     Dates: start: 20080401
  2. DESOGESTREL AND ETHINYL ESTRADIOL [Suspect]
     Indication: CONTRACEPTION
     Dosage: ; PO
     Route: 048
     Dates: start: 20080601
  3. DESOGESTREL AND ETHINYL ESTRADIOL [Suspect]
     Indication: CONTRACEPTION
     Dosage: ; PO
     Route: 048
     Dates: start: 20081101
  4. DESOGESTREL AND ETHINYL ESTRADIOL [Suspect]
     Indication: CONTRACEPTION
     Dosage: ; PO
     Route: 048
     Dates: start: 20090401
  5. DIMENHYDRINATE [Suspect]
     Indication: GASTRITIS
     Dosage: ; PO
     Route: 048
  6. ACYCLOVIR [Suspect]
     Indication: HYPERSENSITIVITY
     Dosage: ; PO
     Route: 048
     Dates: start: 20091127, end: 20091201

REACTIONS (7)
  - DIZZINESS [None]
  - DRUG INTERACTION [None]
  - HYPERSENSITIVITY [None]
  - NAUSEA [None]
  - PAPILLOMA VIRAL INFECTION [None]
  - VAGINAL DISCHARGE [None]
  - VAGINAL HAEMORRHAGE [None]
